FAERS Safety Report 25844963 (Version 2)
Quarter: 2025Q4

REPORT INFORMATION
  Report Type: Other
  Country: EU (occurrence: EU)
  Receive Date: 20250925
  Receipt Date: 20251017
  Transmission Date: 20260118
  Serious: Yes (Death, Hospitalization, Other)
  Sender: APPCO PHARMA LLC
  Company Number: EU-Appco Pharma LLC-2185261

PATIENT
  Age: 59 Year
  Sex: Female
  Weight: 68 kg

DRUGS (5)
  1. VENLAFAXINE [Suspect]
     Active Substance: VENLAFAXINE HYDROCHLORIDE
     Indication: Depression
     Dates: start: 2018, end: 20230412
  2. MIRTAZAPINE [Suspect]
     Active Substance: MIRTAZAPINE
  3. ACETAMINOPHEN [Suspect]
     Active Substance: ACETAMINOPHEN
  4. ZOPICLONE [Suspect]
     Active Substance: ZOPICLONE
  5. OXAZEPAM [Suspect]
     Active Substance: OXAZEPAM

REACTIONS (9)
  - Toxicity to various agents [Fatal]
  - Acute respiratory distress syndrome [Fatal]
  - Electrocardiogram QT prolonged [Unknown]
  - Shock [Unknown]
  - Bezoar [Unknown]
  - Multiple organ dysfunction syndrome [Fatal]
  - Serotonin syndrome [Unknown]
  - Coma [Recovering/Resolving]
  - Intentional overdose [Fatal]
